FAERS Safety Report 10133147 (Version 2)
Quarter: 2014Q2

REPORT INFORMATION
  Report Type: Spontaneous
  Country: US (occurrence: US)
  Receive Date: 20140428
  Receipt Date: 20140605
  Transmission Date: 20141212
  Serious: No
  Sender: FDA-Public Use
  Company Number: US-PFIZER INC-2014116243

PATIENT
  Age: 67 Year
  Sex: Female
  Weight: 67.12 kg

DRUGS (6)
  1. PRISTIQ [Suspect]
     Indication: PARKINSON^S DISEASE
     Dosage: 50 MG, DAILY
     Dates: start: 2014
  2. AZILECT [Interacting]
     Indication: DOPAMINERGIC DRUG THERAPY
     Dosage: 0.5 MG, DAILY
     Dates: start: 201403, end: 201403
  3. AZOR [Concomitant]
     Indication: HYPERTENSION
     Dosage: UNK, DAILY
  4. ATORVASTATIN [Concomitant]
     Indication: BLOOD CHOLESTEROL INCREASED
     Dosage: 40 MG, DAILY
  5. NEXIUM [Concomitant]
     Indication: GASTROOESOPHAGEAL REFLUX DISEASE
     Dosage: 40 MG, DAILY
  6. LEVODOPA-CARBIDOPA [Concomitant]
     Indication: PARKINSON^S DISEASE
     Dosage: (CARBIDOPA 25 MG/ LEVODOPA 100MG), 3X/DAY

REACTIONS (5)
  - Drug interaction [Unknown]
  - Malaise [Recovered/Resolved]
  - Diarrhoea [Recovered/Resolved]
  - Decreased appetite [Recovered/Resolved]
  - Feeling abnormal [Recovered/Resolved]
